FAERS Safety Report 7423515-0 (Version None)
Quarter: 2011Q2

REPORT INFORMATION
  Report Type: 
  Country: None (occurrence: None)
  Receive Date: 20110419
  Receipt Date: 20110407
  Transmission Date: 20111010
  Serious: Yes (Death)
  Sender: FDA-Public Use
  Company Number: PHHY2011NL30838

PATIENT
  Sex: Male

DRUGS (1)
  1. ZOMETA [Suspect]
     Indication: PARANEOPLASTIC SYNDROME
     Dosage: 4 MG/5 ML,
     Dates: start: 20110310

REACTIONS (1)
  - PROSTATE CANCER [None]
